FAERS Safety Report 10144110 (Version 1)
Quarter: 2014Q2

REPORT INFORMATION
  Report Type: Spontaneous
  Country: GB (occurrence: GB)
  Receive Date: 20140430
  Receipt Date: 20140430
  Transmission Date: 20141212
  Serious: Yes (Hospitalization)
  Sender: FDA-Public Use
  Company Number: GB-TEVA-476476ISR

PATIENT
  Age: 70 Year
  Sex: Female

DRUGS (15)
  1. HALOPERIDOL [Suspect]
     Indication: ANXIETY
     Dosage: 1000 MICROGRAM DAILY;
     Route: 048
  2. CALCEOS [Concomitant]
     Dosage: 1 DOSAGE FORMS DAILY;
  3. METFORMIN [Concomitant]
     Dosage: 2 GRAM DAILY;
     Route: 048
  4. VITAMIN B COMPOUND [Concomitant]
     Dosage: 2 DOSAGE FORMS DAILY;
  5. ALENDRONIC ACID [Concomitant]
  6. ALLOPURINOL [Concomitant]
     Route: 048
  7. CARBOCISTEINE [Concomitant]
     Dates: start: 20140320
  8. FENTANYL [Concomitant]
     Route: 062
  9. FUROSEMIDE [Concomitant]
  10. LANSOPRAZOLE [Concomitant]
  11. LISINOPRIL [Concomitant]
  12. NAPROXEN [Concomitant]
  13. SERTRALINE [Concomitant]
  14. SIMVASTATIN [Concomitant]
     Dosage: AT NIGHT
  15. TIOTROPIUM [Concomitant]
     Route: 050

REACTIONS (1)
  - Atrial flutter [Unknown]
